FAERS Safety Report 5909885-0 (Version None)
Quarter: 2008Q4

REPORT INFORMATION
  Report Type: 
  Country: None (occurrence: None)
  Receive Date: 20081003
  Receipt Date: 20081003
  Transmission Date: 20090506
  Serious: No
  Sender: FDA-Public Use
  Company Number: None

PATIENT
  Age: 67 Year
  Sex: Male
  Weight: 90.7194 kg

DRUGS (2)
  1. CIALIS [Suspect]
     Indication: ERECTILE DYSFUNCTION
     Dates: start: 20040129, end: 20080906
  2. VIAGRA [Suspect]

REACTIONS (3)
  - HEARING IMPAIRED [None]
  - TINNITUS [None]
  - VISUAL IMPAIRMENT [None]
